FAERS Safety Report 7312285-2 (Version None)
Quarter: 2011Q1

REPORT INFORMATION
  Report Type: 
  Country: None (occurrence: None)
  Receive Date: 20110224
  Receipt Date: 20110218
  Transmission Date: 20110831
  Serious: Yes (Hospitalization)
  Sender: FDA-Public Use
  Company Number: B0699096A

PATIENT
  Sex: Female

DRUGS (2)
  1. VALTREX [Suspect]
     Indication: HERPES ZOSTER
     Route: 048
     Dates: start: 20110204, end: 20110205
  2. ACIROVEC [Concomitant]
     Indication: HERPES ZOSTER
     Dosage: 2IUAX PER DAY
     Route: 042
     Dates: start: 20110204, end: 20110205

REACTIONS (1)
  - URINARY RETENTION [None]
